FAERS Safety Report 5751477-0 (Version None)
Quarter: 2008Q2

REPORT INFORMATION
  Report Type: 
  Country: None (occurrence: None)
  Receive Date: 20080528
  Receipt Date: 20080514
  Transmission Date: 20081010
  Serious: Yes (Hospitalization, Other)
  Sender: FDA-Public Use
  Company Number: PHHO2008FR06504

PATIENT
  Sex: Male
  Weight: 69 kg

DRUGS (1)
  1. AMN107 AMN+ [Suspect]
     Indication: GASTROINTESTINAL STROMAL TUMOUR
     Dosage: 800 MG, UNK
     Route: 048
     Dates: start: 20080103, end: 20080422

REACTIONS (1)
  - PULMONARY EMBOLISM [None]
